FAERS Safety Report 21108725 (Version 1)
Quarter: 2022Q3

REPORT INFORMATION
  Report Type: Spontaneous
  Country: FR (occurrence: FR)
  Receive Date: 20220721
  Receipt Date: 20220721
  Transmission Date: 20221026
  Serious: Yes (Hospitalization)
  Sender: FDA-Public Use
  Company Number: None

PATIENT
  Age: 86 Year
  Sex: Female
  Weight: 63 kg

DRUGS (3)
  1. MIRTAZAPINE [Suspect]
     Active Substance: MIRTAZAPINE
     Indication: Depression
     Dosage: 30 MILLIGRAM DAILY; 0-0-30 , DURATION : 9 DAYS
     Dates: start: 20220523, end: 20220531
  2. MIRTAZAPINE [Suspect]
     Active Substance: MIRTAZAPINE
     Dosage: 15 MILLIGRAM DAILY; 0-0-15MG , DURATION : 15 DAYS
     Dates: start: 20220509, end: 20220523
  3. SEROPRAM (CITALOPRAM HYDROCHLORIDE) [Suspect]
     Active Substance: CITALOPRAM HYDROCHLORIDE
     Indication: Depression
     Dosage: STRENGTH : 20 MG/0.5 ML , UNIT DOSE : 20 MG , FREQUENCY TIME : 1 DAY , DURATION : 1 MONTHS
     Dates: start: 20220429, end: 20220601

REACTIONS (1)
  - Status epilepticus [Recovered/Resolved]

NARRATIVE: CASE EVENT DATE: 20220531
